FAERS Safety Report 5081015-X (Version None)
Quarter: 2006Q3

REPORT INFORMATION
  Report Type: 
  Country: None (occurrence: None)
  Receive Date: 20060810
  Receipt Date: 20060801
  Transmission Date: 20061208
  Serious: Yes (Disabling)
  Sender: FDA-Public Use
  Company Number: ENTC2006-0182(1)

PATIENT
  Age: 52 Year
  Sex: Male

DRUGS (4)
  1. STALEVO 100 [Suspect]
     Indication: PARKINSON'S DISEASE
     Dosage: 150 MG (50 MG, 3 IN 1 D) ORAL
     Route: 048
     Dates: start: 20060601, end: 20060621
  2. IBUPROFEN [Concomitant]
  3. ROPINIROLE [Concomitant]
  4. ACETAMINOPHEN [Concomitant]

REACTIONS (2)
  - INSOMNIA [None]
  - MUSCULOSKELETAL STIFFNESS [None]
